FAERS Safety Report 8019380-3 (Version None)
Quarter: 2012Q1

REPORT INFORMATION
  Report Type: 
  Country: None (occurrence: None)
  Receive Date: 20120103
  Receipt Date: 20111221
  Transmission Date: 20120608
  Serious: Yes (Hospitalization)
  Sender: FDA-Public Use
  Company Number: PHHY2011US111106

PATIENT

DRUGS (2)
  1. MIACALCIN [Suspect]
     Dosage: 200 IU, UNK
  2. MIACALCIN [Suspect]
     Dosage: 200 IU, UNK

REACTIONS (1)
  - COMPLEX PARTIAL SEIZURES [None]
